FAERS Safety Report 22237070 (Version 1)
Quarter: 2023Q2

REPORT INFORMATION
  Report Type: Spontaneous
  Country: US (occurrence: US)
  Receive Date: 20230421
  Receipt Date: 20230421
  Transmission Date: 20230722
  Serious: Yes (Hospitalization, Other)
  Sender: FDA-Public Use
  Company Number: US-MLMSERVICE-20230405-4210670-1

PATIENT
  Age: 15 Year
  Sex: Female

DRUGS (4)
  1. CARBOPLATIN [Suspect]
     Active Substance: CARBOPLATIN
     Indication: Renal cell carcinoma
     Dosage: 400 MILLIGRAM/SQ. METER, CYCLICAL 400 MILLIGRAM/SQ. METER ON DAY 1
     Route: 065
  2. GEMCITABINE [Suspect]
     Active Substance: GEMCITABINE
     Indication: Renal cell carcinoma
     Dosage: 75 %
     Route: 065
  3. PACLITAXEL [Suspect]
     Active Substance: PACLITAXEL
     Indication: Renal cell carcinoma
     Dosage: 240 MILLIGRAM/SQ. METER, CYCLICAL (80 MG/M2 ON DAYS 1, 8 AND 15)
     Route: 065
  4. LEVOTHYROXINE [Concomitant]
     Active Substance: LEVOTHYROXINE
     Indication: Hypothyroidism
     Dosage: UNK
     Route: 065

REACTIONS (6)
  - Candida infection [Unknown]
  - Escherichia urinary tract infection [Unknown]
  - Staphylococcal infection [Unknown]
  - Gastroenteritis Escherichia coli [Unknown]
  - Colitis [Unknown]
  - Thrombocytopenia [Recovered/Resolved]
